FAERS Safety Report 7205183-6 (Version None)
Quarter: 2010Q4

REPORT INFORMATION
  Report Type: 
  Country: None (occurrence: None)
  Receive Date: 20101231
  Receipt Date: 20101222
  Transmission Date: 20110411
  Serious: Yes (Hospitalization)
  Sender: FDA-Public Use
  Company Number: US-BIOGENIDEC-2010BI043263

PATIENT
  Age: 50 Year
  Sex: Female

DRUGS (2)
  1. AVONEX [Suspect]
     Indication: MULTIPLE SCLEROSIS
     Route: 030
     Dates: start: 20041201
  2. AVONEX [Suspect]
     Route: 030
     Dates: start: 19990501, end: 20020501

REACTIONS (8)
  - APHONIA [None]
  - EYE PAIN [None]
  - FALL [None]
  - FATIGUE [None]
  - LATEX ALLERGY [None]
  - MUSCLE SPASMS [None]
  - NASOPHARYNGITIS [None]
  - WRIST FRACTURE [None]
